FAERS Safety Report 5420017-8 (Version None)
Quarter: 2007Q3

REPORT INFORMATION
  Report Type: 
  Country: None (occurrence: None)
  Receive Date: 20070718
  Receipt Date: 20060623
  Transmission Date: 20080115
  Serious: Yes (Hospitalization)
  Sender: FDA-Public Use
  Company Number: 2006079720

PATIENT
  Age: 51 Year
  Sex: Female

DRUGS (2)
  1. CELEBREX [Suspect]
     Indication: BACK PAIN
     Dosage: 400 MG (200 MG,2 IN 1 D)
     Dates: start: 20000101, end: 20041101
  2. CELEBREX [Suspect]
     Indication: NECK PAIN
     Dosage: 400 MG (200 MG,2 IN 1 D)
     Dates: start: 20000101, end: 20041101

REACTIONS (1)
  - MYOCARDIAL INFARCTION [None]
